FAERS Safety Report 8325452 (Version 3)
Quarter: 2013Q4

REPORT INFORMATION
  Report Type: Spontaneous
  Country: US (occurrence: US)
  Receive Date: 20120106
  Receipt Date: 20131212
  Transmission Date: 20140711
  Serious: Yes (Hospitalization, Other)
  Sender: FDA-Public Use
  Company Number: US-BAYER-2012-000704

PATIENT
  Age: 21 Year
  Sex: Female
  Weight: 90.7 kg

DRUGS (5)
  1. YAZ [Suspect]
     Dosage: UNK
     Route: 048
     Dates: start: 20090729, end: 201001
  2. YAZ [Suspect]
     Dosage: UNK
  3. VITAMINS WITH MINERALS [Concomitant]
     Dosage: UNK
     Dates: start: 20090228, end: 20090626
  4. NAPROXEN [Concomitant]
     Dosage: 550 MG, UNK
     Dates: start: 20090629
  5. FERROUS SULFATE [Concomitant]
     Dosage: 325 MG, UNK
     Dates: start: 20090629

REACTIONS (8)
  - Cholecystitis [None]
  - Cholelithiasis [None]
  - Mental disorder [None]
  - Pain [None]
  - Anxiety [None]
  - Anhedonia [None]
  - Injury [None]
  - Abdominal pain [None]
